FAERS Safety Report 7973177-9 (Version None)
Quarter: 2011Q4

REPORT INFORMATION
  Report Type: 
  Country: None (occurrence: None)
  Receive Date: 20111209
  Receipt Date: 20111125
  Transmission Date: 20120403
  Serious: Yes (Other)
  Sender: FDA-Public Use
  Company Number: 1000025974

PATIENT
  Sex: Female

DRUGS (1)
  1. ESCITALOPRAM OXALATE [Suspect]
     Dosage: 0.5 DOSAGE FORM (0.5 DOSAGE FORMS, 1 IN 1 D)
     Dates: start: 20111124

REACTIONS (1)
  - HAEMATOCHEZIA [None]
